FAERS Safety Report 16945932 (Version 5)
Quarter: 2021Q1

REPORT INFORMATION
  Report Type: Report from Study
  Country: JP (occurrence: JP)
  Receive Date: 20191022
  Receipt Date: 20210211
  Transmission Date: 20210419
  Serious: Yes (Hospitalization)
  Sender: FDA-Public Use
  Company Number: JP-EISAI MEDICAL RESEARCH-EC-2019-063869

PATIENT
  Age: 37 Year
  Sex: Female
  Weight: 50 kg

DRUGS (7)
  1. ERIBULIN [Suspect]
     Active Substance: ERIBULIN
     Indication: BREAST CANCER
     Route: 041
     Dates: start: 20190624, end: 20191009
  2. ERIBULIN [Suspect]
     Active Substance: ERIBULIN
     Route: 041
     Dates: start: 20191030, end: 20200219
  3. LOXOPROFEN [Concomitant]
     Active Substance: LOXOPROFEN
  4. CALONAL [Concomitant]
     Active Substance: ACETAMINOPHEN
  5. FLUNITRAZEPAM [Concomitant]
     Active Substance: FLUNITRAZEPAM
  6. ZOLPIDEM TARTRATE. [Concomitant]
     Active Substance: ZOLPIDEM TARTRATE
  7. HEPARINOID [Concomitant]
     Active Substance: CHONDROITIN SULFATE (BOVINE)

REACTIONS (1)
  - Thrombocytopenia [Recovering/Resolving]

NARRATIVE: CASE EVENT DATE: 20190925
